FAERS Safety Report 19969611 (Version 2)
Quarter: 2025Q3

REPORT INFORMATION
  Report Type: Spontaneous
  Country: EU (occurrence: EU)
  Receive Date: 20211019
  Receipt Date: 20250715
  Transmission Date: 20251021
  Serious: Yes (Other)
  Sender: MYLAN
  Company Number: EU-VIIV HEALTHCARE LIMITED-DE2021GSK138167

PATIENT
  Age: 50 Year
  Sex: Male

DRUGS (3)
  1. NEVIRAPINE [Suspect]
     Active Substance: NEVIRAPINE
     Indication: HIV infection
  2. LAMIVUDINE [Suspect]
     Active Substance: LAMIVUDINE
     Indication: HIV infection
  3. ABACAVIR SULFATE [Suspect]
     Active Substance: ABACAVIR SULFATE
     Indication: HIV infection

REACTIONS (5)
  - Stress fracture [Unknown]
  - Tibia fracture [Unknown]
  - Fracture malunion [Unknown]
  - Bone metabolism disorder [Unknown]
  - Loss of anatomical alignment after fracture reduction [Unknown]
